FAERS Safety Report 12784418 (Version 1)
Quarter: 2016Q3

REPORT INFORMATION
  Report Type: Spontaneous
  Country: US (occurrence: US)
  Receive Date: 20160927
  Receipt Date: 20160927
  Transmission Date: 20161109
  Serious: Yes (Other)
  Sender: FDA-Public Use
  Company Number: US-DEPOMED, INC.-US-2016DEP012144

PATIENT

DRUGS (1)
  1. CAMBIA [Suspect]
     Active Substance: DICLOFENAC POTASSIUM
     Indication: MIGRAINE WITHOUT AURA
     Dosage: 50 MG, UNK, 1 PACKET WITH 1 TO 2 OUNCES OF WATER. DRINK IMMEDIATELY AS A SINGLE DOSE.
     Route: 048
     Dates: start: 20160630, end: 2016

REACTIONS (1)
  - Haemorrhage [Unknown]
